FAERS Safety Report 10416014 (Version 2)
Quarter: 2014Q3

REPORT INFORMATION
  Report Type: Spontaneous
  Country: US (occurrence: US)
  Receive Date: 20140828
  Receipt Date: 20140828
  Transmission Date: 20150326
  Serious: Yes (Hospitalization, Other)
  Sender: FDA-Public Use
  Company Number: US-009507513-2009-190754-NL

PATIENT
  Sex: Female
  Weight: 63 kg

DRUGS (2)
  1. NUVARING [Suspect]
     Active Substance: ETHINYL ESTRADIOL\ETONOGESTREL
     Indication: CONTRACEPTION
     Dosage: DOSE TEXT: 3 WEEKS IN 1 WEEK OUT, CONTINUING: NO
     Route: 067
     Dates: start: 2006, end: 200803
  2. PEPCID [Concomitant]
     Active Substance: FAMOTIDINE
     Indication: PRODUCT USED FOR UNKNOWN INDICATION
     Dosage: 20 MG, UNK

REACTIONS (5)
  - Sarcoidosis [Recovering/Resolving]
  - Breast hyperplasia [Unknown]
  - Pulmonary embolism [Unknown]
  - Fibrocystic breast disease [Unknown]
  - Breast enlargement [Recovered/Resolved]

NARRATIVE: CASE EVENT DATE: 20071211
